FAERS Safety Report 12070403 (Version 2)
Quarter: 2016Q1

REPORT INFORMATION
  Report Type: Spontaneous
  Country: US (occurrence: US)
  Receive Date: 20160211
  Receipt Date: 20160307
  Transmission Date: 20160526
  Serious: No
  Sender: FDA-Public Use
  Company Number: US-GLAXOSMITHKLINE-US2016016766

PATIENT
  Sex: Female

DRUGS (11)
  1. BUDESONIDE. [Concomitant]
     Active Substance: BUDESONIDE
  2. ALBUTEROL + IPRATROPIUM [Concomitant]
  3. OXYGEN. [Concomitant]
     Active Substance: OXYGEN
  4. LORAZEPAM. [Concomitant]
     Active Substance: LORAZEPAM
  5. WARFARIN [Concomitant]
     Active Substance: WARFARIN
  6. ANORO ELLIPTA [Suspect]
     Active Substance: UMECLIDINIUM BROMIDE\VILANTEROL TRIFENATATE
     Indication: DYSPNOEA
     Dosage: 1 PUFF(S), QD, EVERY MORNING
     Route: 055
     Dates: start: 201601
  7. SIMVASTATIN. [Concomitant]
     Active Substance: SIMVASTATIN
  8. PROAIR HFA [Concomitant]
     Active Substance: ALBUTEROL SULFATE
  9. DILTIAZEM [Concomitant]
     Active Substance: DILTIAZEM
  10. CALCIUM [Concomitant]
     Active Substance: CALCIUM
  11. DIGOXIN. [Concomitant]
     Active Substance: DIGOXIN

REACTIONS (3)
  - Device use error [Recovered/Resolved]
  - Dyspnoea [Not Recovered/Not Resolved]
  - Drug ineffective [Recovered/Resolved]
